FAERS Safety Report 8990124 (Version 1)
Quarter: 2012Q4

REPORT INFORMATION
  Report Type: Report from Study
  Country: CA (occurrence: CA)
  Receive Date: 20121228
  Receipt Date: 20121228
  Transmission Date: 20130627
  Serious: Yes (Other)
  Sender: FDA-Public Use
  Company Number: CA-JNJFOC-20121209973

PATIENT
  Sex: Male
  Weight: 51 kg

DRUGS (2)
  1. REMICADE [Suspect]
     Indication: CROHN^S DISEASE
     Route: 042
     Dates: start: 201209
  2. ALL OTHER THERAPEUTICS [Concomitant]
     Route: 065

REACTIONS (3)
  - Infection [Recovered/Resolved]
  - Liver function test abnormal [Recovered/Resolved]
  - Paraesthesia [Recovered/Resolved]
